FAERS Safety Report 6595869-9 (Version None)
Quarter: 2010Q1

REPORT INFORMATION
  Report Type: 
  Country: None (occurrence: None)
  Receive Date: 20100204
  Receipt Date: 20091106
  Transmission Date: 20100710
  Serious: No
  Sender: FDA-Public Use
  Company Number: 2009-09533

PATIENT
  Age: 49 Year
  Sex: Female
  Weight: 52.2 kg

DRUGS (3)
  1. RAPAFLO [Suspect]
     Indication: URINARY RETENTION
     Dosage: 1 TABLET, DAILY, ORAL; 1TABLET, DAILY FOR 1 WEEK  ORAL
     Route: 048
     Dates: start: 20091001, end: 20091001
  2. RAPAFLO [Suspect]
     Indication: URINARY RETENTION
     Dosage: 1 TABLET, DAILY, ORAL; 1TABLET, DAILY FOR 1 WEEK  ORAL
     Route: 048
     Dates: start: 20091101
  3. .. [Concomitant]

REACTIONS (4)
  - ARTHRALGIA [None]
  - CHILLS [None]
  - HYPOTENSION [None]
  - PAIN [None]
